FAERS Safety Report 23996694 (Version 3)
Quarter: 2024Q3

REPORT INFORMATION
  Report Type: Spontaneous
  Country: HU (occurrence: HU)
  Receive Date: 20240620
  Receipt Date: 20240808
  Transmission Date: 20241016
  Serious: Yes (Death, Other)
  Sender: VERTEX
  Company Number: HU-VERTEX PHARMACEUTICALS-2024-010150

PATIENT
  Age: 26 Year
  Sex: Female

DRUGS (4)
  1. ELEXACAFTOR\IVACAFTOR\TEZACAFTOR [Suspect]
     Active Substance: ELEXACAFTOR\IVACAFTOR\TEZACAFTOR
     Indication: Cystic fibrosis
     Dosage: 2 TABS IN AM
     Route: 048
     Dates: start: 20221214
  2. KALYDECO [Suspect]
     Active Substance: IVACAFTOR
     Indication: Cystic fibrosis
     Dosage: 1 TABLET IN THE EVENING
     Route: 048
     Dates: start: 20221214
  3. KALYDECO [Suspect]
     Active Substance: IVACAFTOR
     Dosage: IN PM EVERY SECOND DAY
     Route: 048
  4. VORICONAZOLE [Concomitant]
     Active Substance: VORICONAZOLE
     Dosage: UNK

REACTIONS (3)
  - Haemorrhagic stroke [Fatal]
  - Respiratory failure [Fatal]
  - Drug ineffective [Unknown]

NARRATIVE: CASE EVENT DATE: 20240513
